FAERS Safety Report 6493712-X (Version None)
Quarter: 2009Q4

REPORT INFORMATION
  Report Type: 
  Country: None (occurrence: None)
  Receive Date: 20091214
  Receipt Date: 20091204
  Transmission Date: 20100525
  Serious: Yes (Life-Threatening)
  Sender: FDA-Public Use
  Company Number: CN-BAYER-200941492GPV

PATIENT
  Age: 59 Year
  Sex: Female
  Weight: 64 kg

DRUGS (1)
  1. ULTRAVIST 300 [Suspect]
     Indication: COMPUTERISED TOMOGRAM
     Route: 042
     Dates: start: 20091203, end: 20091203

REACTIONS (6)
  - BLOOD PRESSURE DECREASED [None]
  - COMA [None]
  - LOSS OF CONSCIOUSNESS [None]
  - RASH [None]
  - RESPIRATORY ARREST [None]
  - SHOCK [None]
